FAERS Safety Report 5587385-8 (Version None)
Quarter: 2008Q1

REPORT INFORMATION
  Report Type: 
  Country: None (occurrence: None)
  Receive Date: 20080110
  Receipt Date: 20071218
  Transmission Date: 20080703
  Serious: No
  Sender: FDA-Public Use
  Company Number: US-BOEHRINGER INGELHEIM PHARMACEUTICALS, INC.-2007-BP-26537BP

PATIENT
  Age: 81 Year
  Sex: Female

DRUGS (5)
  1. SPIRIVA [Suspect]
     Indication: CHRONIC OBSTRUCTIVE PULMONARY DISEASE
     Route: 055
     Dates: start: 20050101
  2. ALBUTEROL [Concomitant]
  3. SEREVENT [Concomitant]
  4. THYROID MEDS [Concomitant]
  5. METOPROLOL [Concomitant]

REACTIONS (2)
  - DRY MOUTH [None]
  - INSOMNIA [None]
